FAERS Safety Report 6871047-0 (Version None)
Quarter: 2010Q3

REPORT INFORMATION
  Report Type: 
  Country: None (occurrence: None)
  Receive Date: 20100723
  Receipt Date: 20100719
  Transmission Date: 20110219
  Serious: Yes (Other)
  Sender: FDA-Public Use
  Company Number: US-PFIZER INC-2010031151

PATIENT
  Sex: Female
  Weight: 80.272 kg

DRUGS (5)
  1. DETROL LA [Suspect]
     Indication: URINARY INCONTINENCE
     Dosage: 4 MG, 1X/DAY
     Route: 048
     Dates: start: 20061101
  2. DETROL LA [Suspect]
     Indication: HYPERTONIC BLADDER
  3. ALLEGRA D 24 HOUR [Concomitant]
     Dosage: UNK
  4. LOVAZA [Concomitant]
     Dosage: UNK
  5. OSCAL [Concomitant]
     Dosage: UNK

REACTIONS (7)
  - ASTHMA [None]
  - DRY EYE [None]
  - DRY SKIN [None]
  - LIPIDS INCREASED [None]
  - NASAL DRYNESS [None]
  - OCULAR HYPERAEMIA [None]
  - ROSACEA [None]
